FAERS Safety Report 9462585 (Version 3)
Quarter: 2013Q4

REPORT INFORMATION
  Report Type: Spontaneous
  Country: ES (occurrence: ES)
  Receive Date: 20130816
  Receipt Date: 20131028
  Transmission Date: 20140711
  Serious: Yes (Other)
  Sender: FDA-Public Use
  Company Number: ES-BRISTOL-MYERS SQUIBB COMPANY-19193143

PATIENT
  Age: 68 Year
  Sex: Male
  Weight: 84 kg

DRUGS (4)
  1. ERBITUX SOLN FOR INF 5MG/ML [Suspect]
     Indication: COLON CANCER METASTATIC
     Dosage: 900 MG QUINCENAL:ONG
     Route: 042
     Dates: start: 20120423, end: 20130621
  2. FOLINIC ACID [Concomitant]
     Indication: COLON CANCER METASTATIC
     Dates: start: 201202
  3. FLUOROURACIL [Concomitant]
     Indication: COLON CANCER METASTATIC
     Dates: start: 201202
  4. IRINOTECAN [Concomitant]
     Indication: COLON CANCER METASTATIC
     Dates: start: 201202

REACTIONS (2)
  - Pneumatosis intestinalis [Recovered/Resolved]
  - Malignant neoplasm progression [Unknown]
